FAERS Safety Report 22052468 (Version 2)
Quarter: 2023Q1

REPORT INFORMATION
  Report Type: Spontaneous
  Country: GR (occurrence: GR)
  Receive Date: 20230302
  Receipt Date: 20230313
  Transmission Date: 20230418
  Serious: Yes (Hospitalization, Other)
  Sender: FDA-Public Use
  Company Number: US-ALKEM LABORATORIES LIMITED-US-ALKEM-2023-02249

PATIENT
  Age: 13 Month
  Sex: Female

DRUGS (1)
  1. ARIPIPRAZOLE [Suspect]
     Active Substance: ARIPIPRAZOLE
     Indication: Product used for unknown indication
     Dosage: UNK, TABLET
     Route: 065

REACTIONS (5)
  - Toxic encephalopathy [Recovered/Resolved]
  - Stupor [Recovered/Resolved]
  - Somnolence [Recovered/Resolved]
  - Slow response to stimuli [Recovered/Resolved]
  - Accidental exposure to product by child [Unknown]
